FAERS Safety Report 8250284-7 (Version None)
Quarter: 2012Q1

REPORT INFORMATION
  Report Type: 
  Country: None (occurrence: None)
  Receive Date: 20120328
  Receipt Date: 20120319
  Transmission Date: 20120608
  Serious: Yes (Hospitalization)
  Sender: FDA-Public Use
  Company Number: TCI2012A01429

PATIENT
  Age: 78 Year
  Sex: Male

DRUGS (7)
  1. GLUFAST (MITIGLINIDE CALCIUM) [Suspect]
     Indication: TYPE 2 DIABETES MELLITUS
     Dosage: 30 MG (10, 3
     Route: 048
     Dates: start: 20100610
  2. AMARYL [Concomitant]
  3. ACTOS [Suspect]
     Indication: TYPE 2 DIABETES MELLITUS
     Dosage: 30 MG (30 MG, 1-1)
     Route: 048
     Dates: start: 20080228
  4. MEXITRATE (MEXILETINE HYDROCHLORIDE) [Concomitant]
  5. AMLODIPINE [Concomitant]
  6. LIVALO [Concomitant]
  7. OLMESARTAN MEDOXOMIL [Concomitant]

REACTIONS (1)
  - LARGE INTESTINE CARCINOMA [None]
